FAERS Safety Report 6470524-4 (Version None)
Quarter: 2009Q4

REPORT INFORMATION
  Report Type: 
  Country: None (occurrence: None)
  Receive Date: 20091203
  Receipt Date: 20081105
  Transmission Date: 20100525
  Serious: No
  Sender: FDA-Public Use
  Company Number: US-BRISTOL-MYERS SQUIBB COMPANY-14393169

PATIENT

DRUGS (1)
  1. VIDEX [Suspect]
     Dosage: 400 MG 2 CASULES DAILY.

REACTIONS (1)
  - MEDICATION ERROR [None]
